FAERS Safety Report 5564538-6 (Version None)
Quarter: 2007Q4

REPORT INFORMATION
  Report Type: 
  Country: None (occurrence: None)
  Receive Date: 20071212
  Receipt Date: 20071127
  Transmission Date: 20080405
  Serious: Yes (Hospitalization)
  Sender: FDA-Public Use
  Company Number: US-CVT-070183

PATIENT
  Age: 55 Year
  Sex: Female

DRUGS (9)
  1. RANEXA [Suspect]
     Indication: ANGINA PECTORIS
     Dosage: 500 MG, BID, ORAL; 1000 MG, BID, ORAL
     Route: 048
     Dates: start: 20070101, end: 20070101
  2. RANEXA [Suspect]
     Indication: ANGINA PECTORIS
     Dosage: 500 MG, BID, ORAL; 1000 MG, BID, ORAL
     Route: 048
     Dates: start: 20071001, end: 20071001
  3. ATENOLOL [Concomitant]
  4. PRAVACHOL [Concomitant]
  5. ASPIRIN [Concomitant]
  6. PLAVIX [Concomitant]
  7. ALTACE [Concomitant]
  8. ISOSORBIDE (ISOSORBIDE) [Concomitant]
  9. NORVASC/00972401/(AMLODIPINE) [Concomitant]

REACTIONS (5)
  - CHEST PAIN [None]
  - DYSPNOEA [None]
  - OXYGEN SATURATION DECREASED [None]
  - PULMONARY OEDEMA [None]
  - RALES [None]
